FAERS Safety Report 15891052 (Version 1)
Quarter: 2019Q1

REPORT INFORMATION
  Report Type: Spontaneous
  Country: CZ (occurrence: CZ)
  Receive Date: 20190130
  Receipt Date: 20190130
  Transmission Date: 20190417
  Serious: Yes (Hospitalization, Other)
  Sender: FDA-Public Use
  Company Number: CZ-MYLANLABS-2019M1007693

PATIENT
  Sex: Male

DRUGS (4)
  1. METHAMPHETAMINE                    /00069101/ [Suspect]
     Active Substance: METHAMPHETAMINE
     Indication: PRODUCT USED FOR UNKNOWN INDICATION
     Dosage: DOSAGE FORM: UNSPECIFIED
     Route: 065
  2. FENTANYL. [Suspect]
     Active Substance: FENTANYL
     Indication: PRODUCT USED FOR UNKNOWN INDICATION
     Dosage: UNK
     Route: 065
  3. DRONABINOL. [Suspect]
     Active Substance: DRONABINOL
     Indication: PRODUCT USED FOR UNKNOWN INDICATION
     Dosage: UNK
     Route: 065
  4. DIAZEPAM. [Suspect]
     Active Substance: DIAZEPAM
     Indication: INSOMNIA
     Dosage: 30 MILLIGRAM, TOTAL
     Route: 048

REACTIONS (11)
  - Speech disorder [Unknown]
  - Bradypnoea [Unknown]
  - Drug abuse [Unknown]
  - Eye disorder [Unknown]
  - Fall [Unknown]
  - Depressed level of consciousness [Unknown]
  - Somnolence [Unknown]
  - Intentional product misuse [Unknown]
  - Altered state of consciousness [Unknown]
  - Gait disturbance [Unknown]
  - Miosis [Unknown]
